FAERS Safety Report 18302340 (Version 1)
Quarter: 2020Q3

REPORT INFORMATION
  Report Type: Spontaneous
  Country: US (occurrence: US)
  Receive Date: 20200923
  Receipt Date: 20200923
  Transmission Date: 20201103
  Serious: No
  Sender: FDA-Public Use
  Company Number: US-009507513-2009USA005259

PATIENT
  Sex: Female
  Weight: 79.82 kg

DRUGS (3)
  1. PRINIVIL [Suspect]
     Active Substance: LISINOPRIL
     Dosage: UNK
     Route: 048
  2. COZAAR [Suspect]
     Active Substance: LOSARTAN POTASSIUM
     Route: 048
  3. CODEINE [Suspect]
     Active Substance: CODEINE

REACTIONS (1)
  - Drug hypersensitivity [Unknown]
